FAERS Safety Report 17442515 (Version 1)
Quarter: 2020Q1

REPORT INFORMATION
  Report Type: Report from Study
  Country: IT (occurrence: IT)
  Receive Date: 20200220
  Receipt Date: 20200220
  Transmission Date: 20200409
  Serious: Yes (Death)
  Sender: FDA-Public Use
  Company Number: IT-BAXTER-2020BAX003480

PATIENT

DRUGS (10)
  1. VINCRISTINE [Suspect]
     Active Substance: VINCRISTINE
     Indication: B-CELL LYMPHOMA
     Dosage: FOR A MAXIMUM DOSE OF 2.0 MG (PROMACE-CYTABOM COMBINATION)
     Route: 065
  2. ENDOXAN BAXTER [Suspect]
     Active Substance: CYCLOPHOSPHAMIDE
     Indication: B-CELL LYMPHOMA
     Dosage: PROMACE-CYTABOM COMBINATION
     Route: 065
  3. METHOTREXATE. [Suspect]
     Active Substance: METHOTREXATE
     Indication: B-CELL LYMPHOMA
     Dosage: ON DAY 8 (PROMACE-CYTABOM COMBINATION)
     Route: 042
  4. LEUCOVORIN. [Suspect]
     Active Substance: LEUCOVORIN
     Indication: B-CELL LYMPHOMA
     Dosage: EVERY 6 HOURS FOR 4 DOSES, BEGINNING 24 HOURS AFTER THE METHOTREXATE (PROMACE-CYTABOM COMBINATION)
     Route: 048
  5. COTRIMOXAZOLE [Concomitant]
     Active Substance: SULFAMETHOXAZOLE\TRIMETHOPRIM
     Indication: PROPHYLAXIS
     Dosage: TWO DOUBLE-STRENGTH TABLETS TWICE DAILY THROUGHOUT COURSE OF TREATMENT
     Route: 048
  6. DOXORUBICIN [Suspect]
     Active Substance: DOXORUBICIN
     Indication: B-CELL LYMPHOMA
     Dosage: PROMACE-CYTABOM COMBINATION
     Route: 065
  7. PREDNISONE. [Suspect]
     Active Substance: PREDNISONE
     Indication: B-CELL LYMPHOMA
     Dosage: ON DAY 1-14 (PROMACE-CYTABOM COMBINATION)
     Route: 048
  8. CYTOSINE ARABINOSIDE [Suspect]
     Active Substance: CYTARABINE
     Indication: B-CELL LYMPHOMA
     Dosage: PROMACE-CYTABOM COMBINATION
     Route: 065
  9. ETOPOSIDE. [Suspect]
     Active Substance: ETOPOSIDE
     Indication: B-CELL LYMPHOMA
     Dosage: ETOPOSIDE VP-16 ON DAY 1 (PROMACE-CYTABOM COMBINATION)
     Route: 042
  10. BLEOMYCIN [Suspect]
     Active Substance: BLEOMYCIN SULFATE
     Indication: B-CELL LYMPHOMA
     Dosage: PROMACE-CYTABOM COMBINATION
     Route: 065

REACTIONS (1)
  - Sepsis [Fatal]
